FAERS Safety Report 7234080-5 (Version None)
Quarter: 2011Q1

REPORT INFORMATION
  Report Type: 
  Country: None (occurrence: None)
  Receive Date: 20110113
  Receipt Date: 20110113
  Transmission Date: 20110831
  Serious: Yes (Life-Threatening)
  Sender: FDA-Public Use
  Company Number: None

PATIENT
  Sex: Female
  Weight: 104.7809 kg

DRUGS (1)
  1. GLIPIZIDE [Suspect]
     Indication: DIABETES MELLITUS
     Dosage: 1 TABLET 5 TIMES PO
     Route: 048

REACTIONS (3)
  - DIABETES MELLITUS INADEQUATE CONTROL [None]
  - PRODUCT SUBSTITUTION ISSUE [None]
  - BLOOD GLUCOSE INCREASED [None]
